FAERS Safety Report 13586169 (Version 1)
Quarter: 2017Q2

REPORT INFORMATION
  Report Type: Spontaneous
  Country: US (occurrence: US)
  Receive Date: 20170526
  Receipt Date: 20170526
  Transmission Date: 20170830
  Serious: Yes (Other)
  Sender: FDA-Public Use
  Company Number: US-ASTELLAS-2017US020649

PATIENT
  Age: 65 Year
  Sex: Male

DRUGS (1)
  1. XTANDI [Suspect]
     Active Substance: ENZALUTAMIDE
     Indication: PROSTATE CANCER
     Route: 048

REACTIONS (4)
  - Diarrhoea [Unknown]
  - Nausea [Unknown]
  - Sialoadenitis [Unknown]
  - Hot flush [Unknown]

NARRATIVE: CASE EVENT DATE: 20170517
